FAERS Safety Report 21203317 (Version 1)
Quarter: 2022Q3

REPORT INFORMATION
  Report Type: Spontaneous
  Country: ES (occurrence: ES)
  Receive Date: 20220811
  Receipt Date: 20220811
  Transmission Date: 20221026
  Serious: Yes (Other)
  Sender: FDA-Public Use
  Company Number: ES-ROCHE-3145980

PATIENT
  Sex: Male

DRUGS (1)
  1. RITUXIMAB [Suspect]
     Active Substance: RITUXIMAB
     Dosage: UNK
     Route: 065

REACTIONS (10)
  - Myelopathy [Unknown]
  - Condition aggravated [Unknown]
  - Skin warm [Unknown]
  - Asthenia [Unknown]
  - Ill-defined disorder [Unknown]
  - Initial insomnia [Unknown]
  - Depression [Unknown]
  - Muscle spasticity [Unknown]
  - General symptom [Unknown]
  - Pain [Unknown]
